FAERS Safety Report 24731018 (Version 1)
Quarter: 2024Q4

REPORT INFORMATION
  Report Type: Spontaneous
  Country: US (occurrence: None)
  Receive Date: 20241212
  Receipt Date: 20241212
  Transmission Date: 20250115
  Serious: Yes (Hospitalization)
  Sender: Public
  Company Number: None

PATIENT
  Sex: Female

DRUGS (7)
  1. OPSUMIT [Suspect]
     Active Substance: MACITENTAN
     Indication: Pulmonary arterial hypertension
     Dosage: 10 MG 1 TIME A DAY ORAL?
     Route: 048
     Dates: start: 202408
  2. FLOLAN STERILE DILUENT [Concomitant]
  3. DEVICE [Concomitant]
     Active Substance: DEVICE
  4. MIRENA IUD SYS [Concomitant]
  5. TREPROSTINIL [Concomitant]
     Active Substance: TREPROSTINIL
  6. SILDENAFIL CITRATE [Concomitant]
     Active Substance: SILDENAFIL CITRATE
  7. WINEVAIR SDV [Concomitant]

REACTIONS (10)
  - Catheter site haemorrhage [None]
  - Peripheral swelling [None]
  - Pain in extremity [None]
  - Nausea [None]
  - Diarrhoea [None]
  - Chest pain [None]
  - Oxygen saturation decreased [None]
  - Cardiac septal defect [None]
  - Heart rate decreased [None]
  - Skin infection [None]
